FAERS Safety Report 24655841 (Version 2)
Quarter: 2025Q3

REPORT INFORMATION
  Report Type: Report from Study
  Country: US (occurrence: US)
  Receive Date: 20241124
  Receipt Date: 20250810
  Transmission Date: 20251020
  Serious: Yes (Other)
  Sender: ALEXION PHARMACEUTICALS
  Company Number: US-AstraZeneca-CH-00749640A

PATIENT
  Sex: Female

DRUGS (3)
  1. OSIMERTINIB [Suspect]
     Active Substance: OSIMERTINIB
     Indication: Lung carcinoma cell type unspecified stage 0
     Dosage: 80 MILLIGRAM, QD
     Dates: start: 20231026
  2. ZOFRAN [Concomitant]
     Active Substance: ONDANSETRON HYDROCHLORIDE
     Route: 065
  3. MARINOL [Concomitant]
     Active Substance: DRONABINOL
     Route: 065

REACTIONS (6)
  - Dehydration [Unknown]
  - Onycholysis [Unknown]
  - Onychomadesis [Unknown]
  - Nausea [Unknown]
  - Appetite disorder [Unknown]
  - Pruritus [Unknown]
